FAERS Safety Report 5625032-7 (Version None)
Quarter: 2008Q1

REPORT INFORMATION
  Report Type: 
  Country: None (occurrence: None)
  Receive Date: 20080213
  Receipt Date: 20080201
  Transmission Date: 20080703
  Serious: Yes (Other)
  Sender: FDA-Public Use
  Company Number: US-PFIZER INC-2008011381

PATIENT
  Sex: Female
  Weight: 80.7 kg

DRUGS (2)
  1. CHANTIX [Suspect]
     Indication: SMOKING CESSATION THERAPY
  2. SYNTHROID [Concomitant]
     Indication: THYROID DISORDER

REACTIONS (1)
  - SWOLLEN TONGUE [None]
